FAERS Safety Report 7685654-9 (Version None)
Quarter: 2011Q3

REPORT INFORMATION
  Report Type: 
  Country: None (occurrence: None)
  Receive Date: 20110816
  Receipt Date: 20110804
  Transmission Date: 20111222
  Serious: Yes (Hospitalization, Disabling)
  Sender: FDA-Public Use
  Company Number: CH-US-EMD SERONO, INC.-7070066

PATIENT
  Sex: Female
  Weight: 84 kg

DRUGS (7)
  1. REBIF [Suspect]
     Indication: RELAPSING-REMITTING MULTIPLE SCLEROSIS
     Route: 058
     Dates: start: 20080701
  2. COVERSUM COMBI 5 [Concomitant]
  3. JANUVIA [Concomitant]
     Route: 048
  4. ACETYLCYSTEINE [Concomitant]
     Route: 048
  5. ATORVASTATIN CALCIUM [Concomitant]
     Route: 048
  6. BILOL [Concomitant]
     Indication: HYPERTENSION
     Route: 048
  7. GLYTACID MEPHA [Concomitant]
     Indication: DIABETES MELLITUS
     Route: 048

REACTIONS (1)
  - ISCHAEMIC STROKE [None]
